FAERS Safety Report 23065356 (Version 1)
Quarter: 2023Q4

REPORT INFORMATION
  Report Type: Spontaneous
  Country: US (occurrence: US)
  Receive Date: 20231013
  Receipt Date: 20231013
  Transmission Date: 20240109
  Serious: No
  Sender: FDA-Public Use
  Company Number: US-PFIZER INC-US-GBT-016555

PATIENT
  Age: 11 Year
  Sex: Female

DRUGS (1)
  1. OXBRYTA [Suspect]
     Active Substance: VOXELOTOR
     Dosage: TAKE 3 TABLETS (900MG) BY MOUTH EVERY MORNING AS DIRECTED
     Route: 048

REACTIONS (1)
  - Weight increased [Unknown]
